FAERS Safety Report 16751202 (Version 6)
Quarter: 2019Q4

REPORT INFORMATION
  Report Type: Spontaneous
  Country: US (occurrence: US)
  Receive Date: 20190828
  Receipt Date: 20191202
  Transmission Date: 20200122
  Serious: No
  Sender: FDA-Public Use
  Company Number: US-ACTELION-A-US2019-194738

PATIENT
  Age: 62 Year
  Sex: Female
  Weight: 94.33 kg

DRUGS (3)
  1. OPSUMIT [Suspect]
     Active Substance: MACITENTAN
     Indication: PULMONARY ARTERIAL HYPERTENSION
     Dosage: 10 MG, QD
     Route: 048
     Dates: start: 201907
  2. SILDENAFIL. [Concomitant]
     Active Substance: SILDENAFIL
  3. TYVASO [Concomitant]
     Active Substance: TREPROSTINIL

REACTIONS (5)
  - Epistaxis [Not Recovered/Not Resolved]
  - Cough [Unknown]
  - Heart rate increased [Unknown]
  - Atrial fibrillation [Recovering/Resolving]
  - Hypotension [Unknown]

NARRATIVE: CASE EVENT DATE: 201908
